FAERS Safety Report 4653856-1 (Version None)
Quarter: 2005Q2

REPORT INFORMATION
  Report Type: 
  Country: None (occurrence: None)
  Receive Date: 20050504
  Receipt Date: 20050420
  Transmission Date: 20051028
  Serious: Yes (Hospitalization)
  Sender: FDA-Public Use
  Company Number: FABR-11087

PATIENT
  Age: 60 Year
  Sex: Male
  Weight: 71 kg

DRUGS (2)
  1. FABRAZYME [Suspect]
     Indication: FABRY'S DISEASE
     Dosage: 1 MG/KG Q2WKS IV; 3 MG/KG Q2WKS IV
     Route: 042
     Dates: start: 20030424, end: 20030626
  2. FABRAZYME [Suspect]
     Indication: FABRY'S DISEASE
     Dosage: 1 MG/KG Q2WKS IV; 3 MG/KG Q2WKS IV
     Route: 042
     Dates: start: 20030709

REACTIONS (7)
  - ABDOMINAL PAIN [None]
  - CONDITION AGGRAVATED [None]
  - DIARRHOEA [None]
  - DRUG DOSE OMISSION [None]
  - INTESTINAL ISCHAEMIA [None]
  - RENAL FAILURE [None]
  - VOMITING [None]
